FAERS Safety Report 10610139 (Version 2)
Quarter: 2014Q4

REPORT INFORMATION
  Report Type: Spontaneous
  Country: GB (occurrence: GB)
  Receive Date: 20141126
  Receipt Date: 20141215
  Transmission Date: 20150529
  Serious: Yes (Hospitalization)
  Sender: FDA-Public Use
  Company Number: GB-PFIZER INC-2014320841

PATIENT
  Age: 31 Year
  Sex: Male

DRUGS (6)
  1. OMEPRAZOLE. [Suspect]
     Active Substance: OMEPRAZOLE
     Indication: CONSTIPATION
  2. OMEPRAZOLE. [Suspect]
     Active Substance: OMEPRAZOLE
     Indication: DYSPEPSIA
     Dosage: 20 MG, 2X/DAY
     Dates: start: 201411, end: 201411
  3. OMEPRAZOLE. [Suspect]
     Active Substance: OMEPRAZOLE
     Indication: PAIN
  4. OMEPRAZOLE. [Suspect]
     Active Substance: OMEPRAZOLE
     Indication: NAUSEA
  5. IBUPROFEN. [Suspect]
     Active Substance: IBUPROFEN
     Indication: JOINT DISLOCATION
     Dosage: THREE TIMES A DAY
     Route: 048
     Dates: start: 20141102, end: 20141107
  6. CO-DYDRAMOL [Concomitant]
     Active Substance: ACETAMINOPHEN\DIHYDROCODEINE
     Indication: MUSCULOSKELETAL PAIN
     Dosage: UNK
     Dates: start: 20141102, end: 20141107

REACTIONS (6)
  - Tubulointerstitial nephritis [Unknown]
  - Constipation [Unknown]
  - Pain [Unknown]
  - Acute kidney injury [Not Recovered/Not Resolved]
  - Dyspepsia [Unknown]
  - Nausea [Unknown]

NARRATIVE: CASE EVENT DATE: 20141107
